FAERS Safety Report 6483263-0 (Version None)
Quarter: 2009Q4

REPORT INFORMATION
  Report Type: 
  Country: None (occurrence: None)
  Receive Date: 20091209
  Receipt Date: 20091201
  Transmission Date: 20100525
  Serious: Yes (Hospitalization, Other)
  Sender: FDA-Public Use
  Company Number: BR-ELI_LILLY_AND_COMPANY-BR200912000399

PATIENT
  Sex: Female
  Weight: 55 kg

DRUGS (1)
  1. FORTEO [Suspect]
     Indication: OSTEOPOROSIS
     Dosage: UNK, 2/D
     Route: 058
     Dates: start: 20090301

REACTIONS (3)
  - HERNIA [None]
  - INTENTIONAL DRUG MISUSE [None]
  - WEIGHT DECREASED [None]
